FAERS Safety Report 19895565 (Version 1)
Quarter: 2021Q3

REPORT INFORMATION
  Report Type: Spontaneous
  Country: US (occurrence: US)
  Receive Date: 20210929
  Receipt Date: 20210929
  Transmission Date: 20211014
  Serious: Yes (Hospitalization)
  Sender: FDA-Public Use
  Company Number: None

PATIENT
  Age: 73 Year
  Sex: Female
  Weight: 50.85 kg

DRUGS (13)
  1. CALTRATE [Concomitant]
     Active Substance: CALCIUM CARBONATE
  2. IBRANCE [Suspect]
     Active Substance: PALBOCICLIB
     Indication: BREAST CANCER
     Route: 048
     Dates: start: 20201105
  3. TRINTELLIX [Concomitant]
     Active Substance: VORTIOXETINE HYDROBROMIDE
  4. FULVESTRANT. [Concomitant]
     Active Substance: FULVESTRANT
  5. LORAZEPAM. [Concomitant]
     Active Substance: LORAZEPAM
  6. ATENOLOL. [Concomitant]
     Active Substance: ATENOLOL
  7. IBANDRONATE [Concomitant]
     Active Substance: IBANDRONATE SODIUM
  8. TERBINAFINE. [Concomitant]
     Active Substance: TERBINAFINE
  9. SIMVASTATIN. [Concomitant]
     Active Substance: SIMVASTATIN
  10. TAMOXIFEN [Concomitant]
     Active Substance: TAMOXIFEN
  11. SPIRIVA [Concomitant]
     Active Substance: TIOTROPIUM BROMIDE MONOHYDRATE
  12. TEMAZEPAM. [Concomitant]
     Active Substance: TEMAZEPAM
  13. LORATADINE. [Concomitant]
     Active Substance: LORATADINE

REACTIONS (1)
  - Vascular operation [None]

NARRATIVE: CASE EVENT DATE: 20210929
